FAERS Safety Report 5645779-6 (Version None)
Quarter: 2008Q1

REPORT INFORMATION
  Report Type: 
  Country: None (occurrence: None)
  Receive Date: 20080229
  Receipt Date: 20080222
  Transmission Date: 20080703
  Serious: Yes (Life-Threatening, Other)
  Sender: FDA-Public Use
  Company Number: US-PFIZER INC-2007102934

PATIENT
  Sex: Female
  Weight: 41.7 kg

DRUGS (6)
  1. CELEBREX [Suspect]
     Indication: OSTEOARTHRITIS
     Dates: start: 20030101, end: 20030101
  2. CELEBREX [Suspect]
     Indication: INTERVERTEBRAL DISC PROTRUSION
  3. BEXTRA [Suspect]
  4. INDERAL LA [Concomitant]
     Indication: PALPITATIONS
  5. COMBIPATCH [Concomitant]
  6. IMITREX [Concomitant]
     Indication: MIGRAINE

REACTIONS (6)
  - ANGIOEDEMA [None]
  - DRUG INEFFECTIVE [None]
  - FAT TISSUE INCREASED [None]
  - STEVENS-JOHNSON SYNDROME [None]
  - WEIGHT DECREASED [None]
  - WEIGHT INCREASED [None]
